FAERS Safety Report 4463244-9 (Version None)
Quarter: 2004Q3

REPORT INFORMATION
  Report Type: 
  Country: None (occurrence: None)
  Receive Date: 20040930
  Receipt Date: 20040903
  Transmission Date: 20050211
  Serious: Yes (Hospitalization)
  Sender: FDA-Public Use
  Company Number: 12680450

PATIENT
  Age: 31 Year
  Sex: Female

DRUGS (3)
  1. ZIDOVUDINE [Suspect]
     Indication: HIV INFECTION
  2. DIDANOSINE [Suspect]
     Indication: HIV INFECTION
  3. NEVIRAPINE [Suspect]
     Indication: HIV INFECTION
     Dates: start: 20040710

REACTIONS (1)
  - DERMATITIS ALLERGIC [None]
